FAERS Safety Report 24676650 (Version 1)
Quarter: 2024Q4

REPORT INFORMATION
  Report Type: Spontaneous
  Country: GB (occurrence: GB)
  Receive Date: 20241128
  Receipt Date: 20241128
  Transmission Date: 20250114
  Serious: Yes (Other)
  Sender: JOHNSON AND JOHNSON
  Company Number: None

PATIENT
  Sex: Female

DRUGS (1)
  1. CONCERTA [Suspect]
     Active Substance: METHYLPHENIDATE HYDROCHLORIDE
     Indication: Adverse drug reaction
     Dosage: 36MG
     Dates: start: 20181003, end: 20241004

REACTIONS (2)
  - Growth failure [Unknown]
  - Decreased appetite [Recovered/Resolved]
